FAERS Safety Report 24133571 (Version 4)
Quarter: 2025Q1

REPORT INFORMATION
  Report Type: Report from Study
  Country: CA (occurrence: CA)
  Receive Date: 20240724
  Receipt Date: 20250118
  Transmission Date: 20250409
  Serious: Yes (Other)
  Sender: JOHNSON AND JOHNSON
  Company Number: CA-JNJFOC-20230622467

PATIENT
  Age: 45 Year
  Sex: Female
  Weight: 62 kg

DRUGS (4)
  1. REMICADE [Suspect]
     Active Substance: INFLIXIMAB
     Indication: Ankylosing spondylitis
     Dosage: 53 INFUSIONS?EXPIRY DATE ALSO REPORTED AS //2026 AND JUN-2026
     Route: 041
     Dates: start: 20160510
  2. REMICADE [Suspect]
     Active Substance: INFLIXIMAB
     Route: 041
     Dates: start: 20160510
  3. REMICADE [Suspect]
     Active Substance: INFLIXIMAB
     Route: 041
     Dates: start: 20160510
  4. REMICADE [Suspect]
     Active Substance: INFLIXIMAB
     Dosage: 53 INFUSIONS?EXPIRY DATE ALSO REPORTED AS //2026 AND JUN-2026
     Route: 041
     Dates: start: 20160510

REACTIONS (12)
  - Foot fracture [Recovering/Resolving]
  - Limb injury [Recovering/Resolving]
  - Sinusitis [Recovered/Resolved]
  - Sinus polyp [Recovered/Resolved]
  - Sinus congestion [Recovered/Resolved]
  - Infection [Recovering/Resolving]
  - Axillary pain [Unknown]
  - Inappropriate schedule of product administration [Unknown]
  - Vitamin D decreased [Unknown]
  - Tooth infection [Recovered/Resolved]
  - Nasal septum deviation [Unknown]
  - Blood iron decreased [Unknown]

NARRATIVE: CASE EVENT DATE: 20230501
